FAERS Safety Report 20841104 (Version 1)
Quarter: 2022Q2

REPORT INFORMATION
  Report Type: Spontaneous
  Country: IN (occurrence: IN)
  Receive Date: 20220517
  Receipt Date: 20220517
  Transmission Date: 20220720
  Serious: Yes (Other)
  Sender: FDA-Public Use
  Company Number: IN-JAZZ-2022-IN-015710

PATIENT
  Age: 8 Year
  Sex: Male

DRUGS (1)
  1. ASPARAGINASE [Suspect]
     Active Substance: ASPARAGINASE
     Indication: Acute lymphocytic leukaemia
     Dosage: UNK

REACTIONS (3)
  - Gastrointestinal perforation [Unknown]
  - Cardiac ventricular thrombosis [Unknown]
  - Pancreatitis [Unknown]
